FAERS Safety Report 10599472 (Version 2)
Quarter: 2014Q4

REPORT INFORMATION
  Report Type: Spontaneous
  Country: US (occurrence: US)
  Receive Date: 20141121
  Receipt Date: 20141218
  Transmission Date: 20150529
  Serious: Yes (Hospitalization, Disabling)
  Sender: FDA-Public Use
  Company Number: US-JNJFOC-20141113164

PATIENT
  Age: 37 Year
  Sex: Male

DRUGS (4)
  1. PREZISTA [Suspect]
     Active Substance: DARUNAVIR ETHANOLATE
     Indication: PRODUCT USED FOR UNKNOWN INDICATION
     Route: 048
     Dates: start: 20080305, end: 2013
  2. TENOFOVIR [Suspect]
     Active Substance: TENOFOVIR
     Indication: PRODUCT USED FOR UNKNOWN INDICATION
     Route: 065
     Dates: start: 20071020, end: 2013
  3. LAMIVUDINE. [Suspect]
     Active Substance: LAMIVUDINE
     Indication: PRODUCT USED FOR UNKNOWN INDICATION
     Route: 065
     Dates: start: 20080305, end: 2013
  4. RITONAVIR. [Suspect]
     Active Substance: RITONAVIR
     Indication: PRODUCT USED FOR UNKNOWN INDICATION
     Route: 065
     Dates: start: 20091208, end: 2013

REACTIONS (9)
  - HIV infection [Not Recovered/Not Resolved]
  - Toxoplasmosis [Not Recovered/Not Resolved]
  - Chest pain [Recovered/Resolved]
  - Aspergillus test positive [Unknown]
  - Gastrooesophageal reflux disease [Not Recovered/Not Resolved]
  - Acquired immunodeficiency syndrome [Unknown]
  - Dehydration [Unknown]
  - Anaemia [Not Recovered/Not Resolved]
  - Fungal test positive [Unknown]

NARRATIVE: CASE EVENT DATE: 20091208
